FAERS Safety Report 4809129-7 (Version None)
Quarter: 2005Q4

REPORT INFORMATION
  Report Type: 
  Country: None (occurrence: None)
  Receive Date: 20051024
  Receipt Date: 20051024
  Transmission Date: 20060501
  Serious: Yes (Life-Threatening, Hospitalization, Other)
  Sender: FDA-Public Use
  Company Number: None

PATIENT
  Age: 76 Year
  Sex: Male
  Weight: 80.3 kg

DRUGS (23)
  1. HEPARIN [Suspect]
     Indication: ACUTE MYOCARDIAL INFARCTION
     Dosage: 1200 UNITS/HOUR INFUSION 1MCG/KG/MIN
     Dates: start: 20050722, end: 20050723
  2. INTEGRILIN [Suspect]
     Indication: STENT PLACEMENT
     Dosage: 180 MCG/KG/HR RE-BOLUS
     Route: 042
     Dates: start: 20050801
  3. ASPIRIN [Suspect]
     Dosage: DAILY
  4. PLAVIX [Suspect]
     Dosage: DAILY
  5. ALLOPURINOL [Concomitant]
  6. ACETYLCYSTEINE [Concomitant]
  7. COMBIVENT [Concomitant]
  8. CITALOPRAM [Concomitant]
  9. DSS [Concomitant]
  10. FELODIPINE [Concomitant]
  11. LASIX [Concomitant]
  12. HYDRALAZINE [Concomitant]
  13. ISOSORBIDE MONOTITRATE [Concomitant]
  14. L-THYROXINE [Concomitant]
  15. METOPROLOL [Concomitant]
  16. OMEPRAZOLE [Concomitant]
  17. PREDNISONE [Concomitant]
  18. SIMVASTATIN [Concomitant]
  19. TRAZODONE HCL [Concomitant]
  20. ALBUTEROL [Concomitant]
  21. ACETAMINOPHEN [Concomitant]
  22. IPRATROPIUM NEBS [Concomitant]
  23. TEMAZEPAM [Concomitant]

REACTIONS (5)
  - GASTROINTESTINAL ARTERIOVENOUS MALFORMATION [None]
  - GASTROINTESTINAL HAEMORRHAGE [None]
  - HAEMATEMESIS [None]
  - MELAENA [None]
  - POST PROCEDURAL COMPLICATION [None]
